FAERS Safety Report 22166250 (Version 1)
Quarter: 2023Q1

REPORT INFORMATION
  Report Type: Spontaneous
  Country: US (occurrence: None)
  Receive Date: 20230331
  Receipt Date: 20230331
  Transmission Date: 20230418
  Serious: Yes (Hospitalization)
  Sender: FDA-Public Use
  Company Number: None

PATIENT
  Sex: Female

DRUGS (4)
  1. GENGRAF [Suspect]
     Active Substance: CYCLOSPORINE
     Indication: Liver transplant
     Route: 048
     Dates: start: 20160611
  2. DILT-XR CAP [Concomitant]
  3. ELIQUIS [Concomitant]
     Active Substance: APIXABAN
  4. FAMOTIDINE [Concomitant]
     Active Substance: FAMOTIDINE

REACTIONS (1)
  - Cerebrovascular accident [None]
